FAERS Safety Report 6686073-4 (Version None)
Quarter: 2010Q2

REPORT INFORMATION
  Report Type: 
  Country: None (occurrence: None)
  Receive Date: 20100419
  Receipt Date: 20100414
  Transmission Date: 20101027
  Serious: Yes (Other)
  Sender: FDA-Public Use
  Company Number: CHPA2010DE05830

PATIENT
  Sex: Male
  Weight: 72 kg

DRUGS (2)
  1. OTRIVEN (NCH) [Suspect]
     Indication: HYPERSENSITIVITY
     Dosage: UNK, UNK
     Route: 045
  2. OTRIVEN (NCH) [Suspect]
     Indication: NASOPHARYNGITIS

REACTIONS (7)
  - ANXIETY [None]
  - DRUG DEPENDENCE [None]
  - EPISTAXIS [None]
  - INTENTIONAL DRUG MISUSE [None]
  - NASAL CONGESTION [None]
  - NASAL INFLAMMATION [None]
  - RHINITIS ATROPHIC [None]
